FAERS Safety Report 5091678-0 (Version None)
Quarter: 2006Q3

REPORT INFORMATION
  Report Type: 
  Country: None (occurrence: None)
  Receive Date: 20060829
  Receipt Date: 20060824
  Transmission Date: 20061208
  Serious: Yes (Other)
  Sender: FDA-Public Use
  Company Number: JP-AVENTIS-200612631JP

PATIENT
  Age: 0 Year
  Sex: Male

DRUGS (2)
  1. CLAFORAN [Suspect]
  2. ANTIBIOTICS [Concomitant]

REACTIONS (1)
  - MENINGITIS [None]
